FAERS Safety Report 6019563-8 (Version None)
Quarter: 2008Q4

REPORT INFORMATION
  Report Type: 
  Country: None (occurrence: None)
  Receive Date: 20081224
  Receipt Date: 20081216
  Transmission Date: 20090506
  Serious: Yes (Other)
  Sender: FDA-Public Use
  Company Number: PHHY2008DE32335

PATIENT
  Sex: Female

DRUGS (1)
  1. RASILEZ [Suspect]

REACTIONS (5)
  - ACTIVITIES OF DAILY LIVING IMPAIRED [None]
  - DIZZINESS [None]
  - RASH ERYTHEMATOUS [None]
  - SYNCOPE [None]
  - THERMAL BURN [None]
